FAERS Safety Report 7042814-8 (Version None)
Quarter: 2010Q4

REPORT INFORMATION
  Report Type: 
  Country: None (occurrence: None)
  Receive Date: 20101013
  Receipt Date: 20091130
  Transmission Date: 20110411
  Serious: No
  Sender: FDA-Public Use
  Company Number: US-ASTRAZENECA-2009SE20780

PATIENT
  Age: 69 Year
  Sex: Male

DRUGS (2)
  1. SYMBICORT [Suspect]
     Indication: LUNG DISORDER
     Dosage: 160/4.5 UG  2 PUFFS IN THE MORNING AND TWO AT NIGHT
     Route: 055
     Dates: start: 20091006
  2. COMBIVENT [Concomitant]

REACTIONS (5)
  - DRUG INEFFECTIVE [None]
  - DRY MOUTH [None]
  - ERUCTATION [None]
  - HICCUPS [None]
  - THROAT IRRITATION [None]
